FAERS Safety Report 11367837 (Version 1)
Quarter: 2015Q3

REPORT INFORMATION
  Report Type: Spontaneous
  Country: US (occurrence: None)
  Receive Date: 20150810
  Receipt Date: 20150810
  Transmission Date: 20151125
  Serious: Yes (Life-Threatening, Other)
  Sender: FDA-Public Use
  Company Number: AE15-047

PATIENT
  Age: 80 Year
  Sex: Female
  Weight: 63.5 kg

DRUGS (1)
  1. DICYCLOMINE HYDROCHLORIDE. [Suspect]
     Active Substance: DICYCLOMINE HYDROCHLORIDE
     Dosage: ORAL; DOSE/RATE UNKNOWN?PATIENT CONFIRMED THAT SHE IS TALKING ^MAN^ CONCOMITANT MEDICATIONS BUT WOUD NOT IFENTIFY THEM
     Route: 048
     Dates: start: 20150714

REACTIONS (1)
  - Anaphylactic reaction [None]

NARRATIVE: CASE EVENT DATE: 20150714
